FAERS Safety Report 13411983 (Version 4)
Quarter: 2022Q2

REPORT INFORMATION
  Report Type: Spontaneous
  Country: US (occurrence: US)
  Receive Date: 20170406
  Receipt Date: 20220619
  Transmission Date: 20220720
  Serious: No
  Sender: FDA-Public Use
  Company Number: US-JNJFOC-20170316709

PATIENT
  Sex: Male

DRUGS (4)
  1. RISPERDAL [Suspect]
     Active Substance: RISPERIDONE
     Indication: Product used for unknown indication
     Route: 048
  2. INVEGA [Suspect]
     Active Substance: PALIPERIDONE
     Indication: Schizophrenia
     Route: 048
     Dates: start: 20081021
  3. INVEGA [Suspect]
     Active Substance: PALIPERIDONE
     Dosage: IN VARYING DOSES OF 3 MG, 6 MG
     Route: 048
     Dates: start: 20081025, end: 20090116
  4. INVEGA [Suspect]
     Active Substance: PALIPERIDONE
     Route: 048
     Dates: start: 20090124

REACTIONS (2)
  - Emotional distress [Unknown]
  - Gynaecomastia [Unknown]
